FAERS Safety Report 5604019-4 (Version None)
Quarter: 2008Q1

REPORT INFORMATION
  Report Type: 
  Country: None (occurrence: None)
  Receive Date: 20080128
  Receipt Date: 20080118
  Transmission Date: 20080703
  Serious: Yes (Hospitalization)
  Sender: FDA-Public Use
  Company Number: JP-BRISTOL-MYERS SQUIBB COMPANY-14041610

PATIENT
  Age: 4 Decade
  Sex: Male

DRUGS (8)
  1. EFAVIRENZ [Suspect]
     Route: 048
     Dates: start: 20071126
  2. TRUVADA [Concomitant]
     Dates: start: 20071126
  3. ETHAMBUTOL HYDROCHLORIDE [Concomitant]
  4. FAMOTIDINE [Concomitant]
  5. ISONIAZID [Concomitant]
  6. PREDNISOLONE [Concomitant]
  7. PYRIDOXAL PHOSPHATE [Concomitant]
  8. RIFAMPIN [Concomitant]
     Dates: start: 20070901

REACTIONS (2)
  - BLOOD ALKALINE PHOSPHATASE INCREASED [None]
  - GAMMA-GLUTAMYLTRANSFERASE INCREASED [None]
